FAERS Safety Report 16418375 (Version 1)
Quarter: 2019Q2

REPORT INFORMATION
  Report Type: Spontaneous
  Country: US (occurrence: US)
  Receive Date: 20190612
  Receipt Date: 20190612
  Transmission Date: 20190711
  Serious: No
  Sender: FDA-Public Use
  Company Number: US-TEVA-2019-US-1054594

PATIENT

DRUGS (1)
  1. SUMATRIPTAN SUCCINATE TEVA [Suspect]
     Active Substance: SUMATRIPTAN SUCCINATE
     Indication: MIGRAINE
     Dosage: SUMATRIPTAN: 6MG IN 0.5ML
     Route: 065

REACTIONS (3)
  - Head discomfort [Unknown]
  - Device malfunction [Unknown]
  - Product substitution issue [Unknown]
